FAERS Safety Report 17256581 (Version 1)
Quarter: 2019Q4

REPORT INFORMATION
  Report Type: Spontaneous
  Country: US (occurrence: US)
  Receive Date: 20191217
  Receipt Date: 20191217
  Transmission Date: 20200122
  Serious: Yes (Hospitalization)
  Sender: FDA-Public Use
  Company Number: None

PATIENT
  Age: 78 Year
  Sex: Male

DRUGS (3)
  1. XGEVA [Concomitant]
     Active Substance: DENOSUMAB
  2. LUPRON DEPT-ADULT [Concomitant]
  3. XTANDI [Suspect]
     Active Substance: ENZALUTAMIDE
     Indication: NEOPLASM MALIGNANT
     Dosage: ?          OTHER FREQUENCY:4 CAPS EVERYDAY;?
     Route: 048
     Dates: start: 20191028

REACTIONS (1)
  - Cataract operation [None]

NARRATIVE: CASE EVENT DATE: 20191216
